FAERS Safety Report 26090268 (Version 1)
Quarter: 2025Q4

REPORT INFORMATION
  Report Type: Other
  Country: US (occurrence: US)
  Receive Date: 20251126
  Receipt Date: 20251126
  Transmission Date: 20260117
  Serious: Yes (Hospitalization, Other)
  Sender: BIONPHARMA INC.
  Company Number: US-Bion-015310

PATIENT
  Age: 70 Year
  Sex: Female

DRUGS (3)
  1. IBUPROFEN [Suspect]
     Active Substance: IBUPROFEN
     Indication: Musculoskeletal discomfort
  2. IBUPROFEN [Suspect]
     Active Substance: IBUPROFEN
     Indication: Chest pain
  3. IBUPROFEN [Suspect]
     Active Substance: IBUPROFEN
     Indication: Abdominal pain lower

REACTIONS (1)
  - Duodenal perforation [Recovering/Resolving]
